FAERS Safety Report 4959113-8 (Version None)
Quarter: 2006Q1

REPORT INFORMATION
  Report Type: 
  Country: None (occurrence: None)
  Receive Date: 20060330
  Receipt Date: 20060330
  Transmission Date: 20060701
  Serious: Yes (Other)
  Sender: FDA-Public Use
  Company Number: None

PATIENT
  Age: 47 Year
  Sex: Female
  Weight: 61.2356 kg

DRUGS (1)
  1. OXYCONTIN [Suspect]
     Dosage: 40 MG 1 PO BID
     Route: 048
     Dates: start: 20060301

REACTIONS (1)
  - DRUG EFFECT DECREASED [None]
